FAERS Safety Report 18920699 (Version 1)
Quarter: 2021Q1

REPORT INFORMATION
  Report Type: Spontaneous
  Country: US (occurrence: US)
  Receive Date: 20210222
  Receipt Date: 20210222
  Transmission Date: 20210420
  Serious: Yes (Other)
  Sender: FDA-Public Use
  Company Number: US-SA-2021SA049711

PATIENT
  Age: 20 Month
  Sex: Male

DRUGS (6)
  1. CLADRIBINE. [Suspect]
     Active Substance: CLADRIBINE
     Indication: LANGERHANS^ CELL HISTIOCYTOSIS
     Dosage: EVERY 28 DAYS
  2. VINBLASTINE [Suspect]
     Active Substance: VINBLASTINE
     Indication: LANGERHANS^ CELL HISTIOCYTOSIS
     Dosage: UNK UNK, QW
  3. PREDNISOLONE. [Suspect]
     Active Substance: PREDNISOLONE
     Dosage: UNK UNK, Q3W
  4. VINBLASTINE [Suspect]
     Active Substance: VINBLASTINE
     Dosage: UNK UNK, Q3W
  5. CLOFARABINE. [Suspect]
     Active Substance: CLOFARABINE
     Indication: LANGERHANS^ CELL HISTIOCYTOSIS
     Dosage: 25 MG/M2, QD
  6. PREDNISOLONE. [Suspect]
     Active Substance: PREDNISOLONE
     Indication: LANGERHANS^ CELL HISTIOCYTOSIS
     Dosage: UNK UNK, QD

REACTIONS (11)
  - Pyrexia [Recovered/Resolved]
  - Off label use [Unknown]
  - Pancytopenia [Recovered/Resolved]
  - Pyrexia [Unknown]
  - Cough [Unknown]
  - Respiratory syncytial virus infection [Unknown]
  - Rhinorrhoea [Unknown]
  - Neutropenia [Recovered/Resolved]
  - Epstein-Barr virus infection [Unknown]
  - Haemophagocytic lymphohistiocytosis [Recovering/Resolving]
  - Otorrhoea [Unknown]
